FAERS Safety Report 8621394-7 (Version None)
Quarter: 2012Q3

REPORT INFORMATION
  Report Type: 
  Country: None (occurrence: None)
  Receive Date: 20120824
  Receipt Date: 20120815
  Transmission Date: 20120928
  Serious: Yes (Hospitalization, Other)
  Sender: FDA-Public Use
  Company Number: US-ASTRAZENECA-2012SE57608

PATIENT
  Age: 62 Year
  Sex: Female
  Weight: 79.4 kg

DRUGS (10)
  1. PRILOSEC OTC [Suspect]
     Indication: GASTROOESOPHAGEAL REFLUX DISEASE
     Route: 048
     Dates: start: 20090101, end: 20110101
  2. ASPIRIN [Concomitant]
     Indication: CARDIAC DISORDER
     Dosage: DAILY
     Route: 048
  3. SPIRONOLACTONE [Concomitant]
     Indication: BLOOD POTASSIUM ABNORMAL
     Dosage: DAILY
     Route: 048
  4. FOLIC ACID [Concomitant]
     Indication: MEDICAL DIET
     Dosage: DAILY
     Route: 048
  5. PRILOSEC OTC [Suspect]
     Route: 048
     Dates: start: 20090101, end: 20110101
  6. DIOVAN [Concomitant]
     Indication: BLOOD PRESSURE ABNORMAL
     Dosage: DAILY
     Route: 048
  7. METOPROLOL TARTRATE [Concomitant]
     Indication: BLOOD PRESSURE ABNORMAL
     Dosage: DAILY
     Route: 048
  8. NEXIUM [Suspect]
     Indication: GASTROOESOPHAGEAL REFLUX DISEASE
     Route: 048
     Dates: start: 20020101
  9. LIPITOR [Concomitant]
     Indication: BLOOD CHOLESTEROL ABNORMAL
     Dosage: DAILY
     Route: 048
  10. OMEPRAZOLE [Concomitant]
     Indication: GASTROOESOPHAGEAL REFLUX DISEASE
     Dosage: DAILY
     Route: 048

REACTIONS (11)
  - INTENTIONAL DRUG MISUSE [None]
  - BLOOD IRON DECREASED [None]
  - DYSPHONIA [None]
  - DYSPEPSIA [None]
  - DYSGEUSIA [None]
  - CELLULITIS [None]
  - BLOOD POTASSIUM DECREASED [None]
  - ATRIOVENTRICULAR BLOCK [None]
  - OEDEMA PERIPHERAL [None]
  - RENAL IMPAIRMENT [None]
  - PNEUMONIA ASPIRATION [None]
